FAERS Safety Report 22752093 (Version 2)
Quarter: 2023Q4

REPORT INFORMATION
  Report Type: Report from Study
  Country: IT (occurrence: IT)
  Receive Date: 20230726
  Receipt Date: 20231018
  Transmission Date: 20240110
  Serious: Yes (Hospitalization)
  Sender: FDA-Public Use
  Company Number: None

PATIENT
  Age: 7 Month
  Sex: Female
  Weight: 9 kg

DRUGS (3)
  1. CARBOPLATIN [Suspect]
     Active Substance: CARBOPLATIN
     Indication: Hepatoblastoma
     Dosage: 165 MG
     Route: 042
     Dates: start: 20211231, end: 20220621
  2. DOXORUBICIN HYDROCHLORIDE [Suspect]
     Active Substance: DOXORUBICIN HYDROCHLORIDE
     Indication: Hepatoblastoma
     Dosage: 9.9 MG
     Route: 042
     Dates: start: 20211231, end: 20220622
  3. CISPLATIN [Suspect]
     Active Substance: CISPLATIN
     Dosage: 26 MG
     Route: 042
     Dates: start: 20211231, end: 20220601

REACTIONS (2)
  - Bacterial sepsis [Recovered/Resolved]
  - Febrile neutropenia [Recovered/Resolved]

NARRATIVE: CASE EVENT DATE: 20220701
